FAERS Safety Report 5953925-X (Version None)
Quarter: 2008Q4

REPORT INFORMATION
  Report Type: 
  Country: None (occurrence: None)
  Receive Date: 20081114
  Receipt Date: 20081103
  Transmission Date: 20090506
  Serious: Yes (Other)
  Sender: FDA-Public Use
  Company Number: DE-PFIZER INC-2008089600

PATIENT
  Sex: Female
  Weight: 65 kg

DRUGS (3)
  1. LYRICA [Suspect]
     Indication: PAIN
     Route: 048
     Dates: start: 20081015, end: 20081022
  2. LYRICA [Suspect]
     Indication: SLEEP DISORDER
  3. LYRICA [Suspect]
     Indication: FIBROMYALGIA

REACTIONS (6)
  - GINGIVITIS [None]
  - HYPERSENSITIVITY [None]
  - LIP BLISTER [None]
  - LIP SWELLING [None]
  - TONGUE BLISTERING [None]
  - VIRAL INFECTION [None]
